FAERS Safety Report 13292275 (Version 2)
Quarter: 2017Q2

REPORT INFORMATION
  Report Type: Spontaneous
  Country: US (occurrence: US)
  Receive Date: 20170303
  Receipt Date: 20170609
  Transmission Date: 20170830
  Serious: No
  Sender: FDA-Public Use
  Company Number: US-ASTRAZENECA-2017SE20315

PATIENT
  Age: 11828 Day
  Sex: Female
  Weight: 61.6 kg

DRUGS (2)
  1. LIDOCAINE. [Concomitant]
     Active Substance: LIDOCAINE
     Indication: SUPPLEMENTATION THERAPY
     Route: 023
     Dates: start: 20160219
  2. ZOLADEX [Suspect]
     Active Substance: GOSERELIN ACETATE
     Indication: NEOPLASM MALIGNANT
     Route: 058
     Dates: start: 20160219

REACTIONS (4)
  - Off label use [Not Recovered/Not Resolved]
  - Product use in unapproved indication [Unknown]
  - Migration of implanted drug [Unknown]
  - Injection site haemorrhage [Unknown]

NARRATIVE: CASE EVENT DATE: 20160219
